FAERS Safety Report 4945808-9 (Version None)
Quarter: 2006Q1

REPORT INFORMATION
  Report Type: 
  Country: None (occurrence: None)
  Receive Date: 20060117
  Receipt Date: 20050906
  Transmission Date: 20060701
  Serious: Yes (Hospitalization)
  Sender: FDA-Public Use
  Company Number: A03200502813

PATIENT
  Age: 84 Year
  Sex: Female
  Weight: 54.87 kg

DRUGS (5)
  1. PLAVIX [Suspect]
     Indication: STENT PLACEMENT
     Dosage: 75 MG QD -  ORAL
     Route: 048
     Dates: start: 20040101
  2. LORAZEPAM [Concomitant]
  3. NISOLDIPINE [Concomitant]
  4. ACETYLSALICYLIC ACID SRT [Concomitant]
  5. LEVOTHYROXINE SODIUM [Concomitant]

REACTIONS (3)
  - ABDOMINAL PAIN UPPER [None]
  - CYSTITIS [None]
  - HYPERHIDROSIS [None]
